FAERS Safety Report 14875376 (Version 1)
Quarter: 2018Q2

REPORT INFORMATION
  Report Type: Report from Study
  Country: US (occurrence: US)
  Receive Date: 20180510
  Receipt Date: 20180510
  Transmission Date: 20180711
  Serious: No
  Sender: FDA-Public Use
  Company Number: PHEH2018US017092

PATIENT
  Age: 57 Year
  Sex: Female

DRUGS (1)
  1. GILENYA [Suspect]
     Active Substance: FINGOLIMOD HYDROCHLORIDE
     Indication: MULTIPLE SCLEROSIS
     Dosage: UNK UNK, QD
     Route: 065
     Dates: start: 20180421

REACTIONS (5)
  - Drug hypersensitivity [Unknown]
  - Swelling face [Unknown]
  - Urinary tract infection [Unknown]
  - Urticaria [Unknown]
  - Lip swelling [Unknown]

NARRATIVE: CASE EVENT DATE: 20180423
